FAERS Safety Report 13395640 (Version 2)
Quarter: 2017Q2

REPORT INFORMATION
  Report Type: Spontaneous
  Country: US (occurrence: US)
  Receive Date: 20170403
  Receipt Date: 20170522
  Transmission Date: 20170830
  Serious: No
  Sender: FDA-Public Use
  Company Number: US-SHIRE-US201707318

PATIENT
  Age: 52 Year
  Sex: Female
  Weight: 52.61 kg

DRUGS (1)
  1. FIRAZYR [Suspect]
     Active Substance: ICATIBANT ACETATE
     Indication: HEREDITARY ANGIOEDEMA
     Dosage: 30 MG, PRN, MAX 3 DOSES IN 24 HRS
     Route: 058
     Dates: start: 20170309

REACTIONS (4)
  - Hereditary angioedema [Not Recovered/Not Resolved]
  - Injection site erythema [Unknown]
  - Dysphonia [Unknown]
  - Injection site pain [Unknown]

NARRATIVE: CASE EVENT DATE: 201703
